FAERS Safety Report 8889380 (Version 1)
Quarter: 2012Q4

REPORT INFORMATION
  Report Type: Spontaneous
  Country: US (occurrence: None)
  Receive Date: 20121102
  Receipt Date: 20121102
  Transmission Date: 20130627
  Serious: Yes (Other)
  Sender: FDA-Public Use
  Company Number: None

PATIENT
  Sex: Female
  Weight: 85.26 kg

DRUGS (2)
  1. OMEPRAZOLE [Suspect]
     Indication: GERD
     Route: 048
  2. NEXIUM [Suspect]
     Indication: DYSPHAGIA
     Route: 048
     Dates: start: 20090415

REACTIONS (2)
  - No therapeutic response [None]
  - Drug ineffective [None]
